FAERS Safety Report 24897264 (Version 2)
Quarter: 2025Q1

REPORT INFORMATION
  Report Type: Spontaneous
  Country: US (occurrence: US)
  Receive Date: 20250129
  Receipt Date: 20250325
  Transmission Date: 20250409
  Serious: Yes (Other)
  Sender: NOVO NORDISK
  Company Number: US-NOVOPROD-1355643

PATIENT
  Age: 38 Year
  Sex: Male

DRUGS (3)
  1. TRESIBA [Suspect]
     Active Substance: INSULIN DEGLUDEC
     Indication: Diabetes mellitus
     Route: 058
     Dates: start: 2007
  2. TRESIBA [Suspect]
     Active Substance: INSULIN DEGLUDEC
     Route: 058
     Dates: start: 2007
  3. TRESIBA [Suspect]
     Active Substance: INSULIN DEGLUDEC
     Route: 058
     Dates: start: 2007

REACTIONS (4)
  - Blood glucose decreased [Recovered/Resolved]
  - Altered state of consciousness [Recovered/Resolved]
  - Drug ineffective [Unknown]
  - Product quality issue [Unknown]

NARRATIVE: CASE EVENT DATE: 20241223
